FAERS Safety Report 16314433 (Version 2)
Quarter: 2019Q2

REPORT INFORMATION
  Report Type: Spontaneous
  Country: KR (occurrence: KR)
  Receive Date: 20190515
  Receipt Date: 20190523
  Transmission Date: 20190711
  Serious: Yes (Other)
  Sender: FDA-Public Use
  Company Number: KR-PFIZER INC-2019200718

PATIENT
  Age: 40 Year
  Sex: Male

DRUGS (5)
  1. ACTINAMIDE [Concomitant]
     Dosage: 1 MG, CYCLIC (EVERY 9 WEEKS)
     Route: 030
     Dates: start: 20180424, end: 20180515
  2. CARPLAN [Suspect]
     Active Substance: CARBOPLATIN
     Indication: NON-SMALL CELL LUNG CANCER STAGE IV
     Dosage: 5 AUC
     Route: 042
     Dates: start: 20180424, end: 20180515
  3. ALIMTA [Suspect]
     Active Substance: PEMETREXED DISODIUM
     Indication: NON-SMALL CELL LUNG CANCER STAGE IV
     Dosage: 500 MG/M2, UNK
     Route: 042
     Dates: start: 20180424, end: 20180515
  4. DEXAMETHASONE. [Concomitant]
     Active Substance: DEXAMETHASONE
     Indication: PREMEDICATION
     Dosage: 4 MG, 2X/DAY (PRIOR TO ADMINISTRATION, ON THE DAY OF ADMINISTRATION, AND AFTER ADMINISTRATION)
     Dates: start: 20180424, end: 20180515
  5. FOLCID [Concomitant]
     Indication: PREMEDICATION
     Dosage: 1 MG, 1X/DAY
     Route: 048
     Dates: start: 20180424, end: 20180515

REACTIONS (1)
  - Pneumonia [Recovered/Resolved]

NARRATIVE: CASE EVENT DATE: 20180506
